FAERS Safety Report 25482578 (Version 3)
Quarter: 2025Q3

REPORT INFORMATION
  Report Type: Spontaneous
  Country: US (occurrence: US)
  Receive Date: 20250626
  Receipt Date: 20250707
  Transmission Date: 20251020
  Serious: No
  Sender: ABBVIE
  Company Number: US-ABBVIE-6341443

PATIENT

DRUGS (2)
  1. BOTOX [Suspect]
     Active Substance: ONABOTULINUMTOXINA
     Indication: Product used for unknown indication
     Route: 065
  2. RISANKIZUMAB [Concomitant]
     Active Substance: RISANKIZUMAB
     Indication: Product used for unknown indication

REACTIONS (1)
  - Product storage error [Unknown]
